FAERS Safety Report 8965677 (Version 1)
Quarter: 2012Q4

REPORT INFORMATION
  Report Type: Spontaneous
  Country: US (occurrence: None)
  Receive Date: 20121212
  Receipt Date: 20121212
  Transmission Date: 20130627
  Serious: Yes (Hospitalization)
  Sender: FDA-Public Use
  Company Number: None

PATIENT
  Age: 83 Year
  Sex: Male
  Weight: 90.5 kg

DRUGS (1)
  1. PRAVASTATIN [Suspect]
     Indication: HYPERLIPIDEMIA
     Dosage: 20 MG  HS  PO
     Route: 048
     Dates: start: 20120928, end: 20121025

REACTIONS (12)
  - Dizziness [None]
  - Sensory disturbance [None]
  - Headache [None]
  - Dyspnoea [None]
  - Tinnitus [None]
  - Eye pain [None]
  - Amnesia [None]
  - Vision blurred [None]
  - Abnormal sensation in eye [None]
  - Myalgia [None]
  - Hypertension [None]
  - Confusional state [None]
